FAERS Safety Report 11358747 (Version 1)
Quarter: 2015Q3

REPORT INFORMATION
  Report Type: Report from Study
  Country: US (occurrence: None)
  Receive Date: 20150716
  Receipt Date: 20150716
  Transmission Date: 20151125
  Serious: Yes (Other)
  Sender: FDA-Public Use
  Company Number: 2014PROUSA03454

PATIENT
  Age: 66 Year
  Sex: Male
  Weight: 97.7 kg

DRUGS (16)
  1. DOCETAXEL. [Concomitant]
     Active Substance: DOCETAXEL
  2. ZYTIGA (ABIRATERONE ACETATE) [Concomitant]
  3. COMPAZINE (PROCHLORPERAZINE MALEATE) [Concomitant]
  4. SENNA [Concomitant]
     Active Substance: SENNA LEAF\SENNOSIDES\SENNOSIDES A AND B
  5. ATIVAN [Concomitant]
     Active Substance: LORAZEPAM
  6. OXYCONTIN [Concomitant]
     Active Substance: OXYCODONE HYDROCHLORIDE
  7. SIMVASTATIN. [Concomitant]
     Active Substance: SIMVASTATIN
  8. PREDNISONE (PREDNISONE ACETATE) [Concomitant]
  9. ASPIRIN (ACETYLSALICYLIC ACID) [Concomitant]
     Active Substance: ASPIRIN
  10. PROVENGE [Suspect]
     Active Substance: SIPULEUCEL-T
     Indication: PROSTATE CANCER METASTATIC
     Dosage: 250 ML, SINGLE, INTRAVENOUS
     Route: 042
     Dates: start: 20130805, end: 20130805
  11. DEXAMETHASONE (DEXAMETHASONE SODIUM PHOSPHATE) [Concomitant]
  12. DOCUSATE SODIUM. [Concomitant]
     Active Substance: DOCUSATE SODIUM
  13. LOSARTAN. [Concomitant]
     Active Substance: LOSARTAN
  14. OMEPRAZOLE. [Concomitant]
     Active Substance: OMEPRAZOLE
  15. REQUIP [Concomitant]
     Active Substance: ROPINIROLE HYDROCHLORIDE
  16. OXYCODONE [Concomitant]
     Active Substance: OXYCODONE

REACTIONS (3)
  - Oxygen saturation decreased [None]
  - Blood pressure increased [None]
  - Chills [None]

NARRATIVE: CASE EVENT DATE: 20130819
